FAERS Safety Report 21075910 (Version 1)
Quarter: 2022Q3

REPORT INFORMATION
  Report Type: Report from Study
  Country: DE (occurrence: DE)
  Receive Date: 20220713
  Receipt Date: 20220713
  Transmission Date: 20221027
  Serious: Yes (Other)
  Sender: FDA-Public Use
  Company Number: DE-PFM-2021-01938

PATIENT
  Age: 54 Year
  Sex: Male

DRUGS (4)
  1. ENCORAFENIB [Suspect]
     Active Substance: ENCORAFENIB
     Indication: Malignant melanoma
     Dosage: 450 MG, 1X PER DAY
     Route: 048
     Dates: start: 20201003, end: 20210201
  2. BINIMETINIB [Suspect]
     Active Substance: BINIMETINIB
     Indication: Malignant melanoma
     Dosage: 45 MG, 2X PER DAY
     Route: 048
     Dates: start: 20201003, end: 20201008
  3. BINIMETINIB [Suspect]
     Active Substance: BINIMETINIB
     Dosage: 45 MG, QD (1/DAY)
     Route: 048
     Dates: start: 20201013, end: 20210201
  4. ALLOPURINOL [Concomitant]
     Active Substance: ALLOPURINOL
     Dosage: UNK
     Route: 065

REACTIONS (11)
  - Arthralgia [Recovered/Resolved]
  - Arthralgia [Recovered/Resolved]
  - Retinopathy [Recovered/Resolved]
  - Fatigue [Recovered/Resolved]
  - Vertigo [Recovered/Resolved]
  - Sinus tachycardia [Recovered/Resolved]
  - Flushing [Recovered/Resolved]
  - Dry skin [Recovered/Resolved]
  - Peripheral swelling [Recovered/Resolved]
  - Hyperthyroidism [Recovered/Resolved]
  - Pain [Not Recovered/Not Resolved]

NARRATIVE: CASE EVENT DATE: 20201003
